FAERS Safety Report 7721284-8 (Version None)
Quarter: 2011Q3

REPORT INFORMATION
  Report Type: 
  Country: None (occurrence: None)
  Receive Date: 20110831
  Receipt Date: 20110822
  Transmission Date: 20111222
  Serious: Yes (Hospitalization, Other)
  Sender: FDA-Public Use
  Company Number: PHHY2010DE75084

PATIENT
  Sex: Female
  Weight: 104 kg

DRUGS (18)
  1. JODID 200 [Concomitant]
     Dosage: 200 UG/DAY
     Route: 048
  2. HERCEPTIN [Concomitant]
     Dosage: 2 MG/KG, UNK
     Dates: start: 20110407
  3. ZOMETA [Suspect]
     Indication: PROPHYLAXIS
     Dosage: 4 MG, UNK
     Route: 042
     Dates: start: 20100730
  4. DICLOFENAC SODIUM [Concomitant]
     Indication: PAIN
     Dosage: 100 MG/DAY
     Route: 048
     Dates: start: 20100809
  5. REQUIP [Concomitant]
     Dosage: 0.25 MG, UNK
     Route: 048
  6. SAROTEN ^BAYER VITAL^ [Concomitant]
     Dosage: 25 MG/DAY
     Dates: start: 20100101, end: 20100801
  7. AMLODIPINE [Concomitant]
     Indication: HYPERTENSION
     Dosage: 5 MG/DAY
     Route: 048
  8. LYRICA [Concomitant]
     Dosage: 25 MG/DAY
     Dates: start: 20100101, end: 20100801
  9. IBUPROFEN [Concomitant]
     Dosage: 800 MG/DAY
  10. ENALAPRIL MALEATE [Concomitant]
     Indication: HYPERTENSION
     Dosage: 20 MG/DAY
     Route: 048
  11. MARCUMAR [Concomitant]
     Indication: PULMONARY EMBOLISM
     Dosage: 3 MG/DAY
     Route: 048
     Dates: start: 20061015
  12. FENTANYL [Concomitant]
     Indication: PAIN
     Route: 048
     Dates: start: 20100701
  13. SIMAVASTATIN [Concomitant]
     Indication: HYPERCHOLESTEROLAEMIA
     Dosage: 60 MG/DAY
     Route: 048
     Dates: end: 20100724
  14. PANTOPRAZOLE [Concomitant]
     Dosage: 20 MG, UNK
     Route: 048
  15. PACLITAXEL [Concomitant]
     Dosage: 80 MG/M2, UNK
     Dates: start: 20110609
  16. CARBIDOPA + LEVODOPA [Concomitant]
     Indication: RESTLESS LEGS SYNDROME
     Dosage: 200 MG/50 MG/DAY
  17. NOVALGIN [Concomitant]
     Indication: PAIN
     Dosage: UNK
     Dates: start: 20100101
  18. FASLODEX [Concomitant]
     Dosage: 500 MG EVERY 4 WEEKS
     Dates: start: 20101027

REACTIONS (5)
  - SPINAL OSTEOARTHRITIS [None]
  - DYSPNOEA [None]
  - CHEST PAIN [None]
  - METASTASES TO LYMPH NODES [None]
  - ERYSIPELAS [None]
